FAERS Safety Report 21992942 (Version 1)
Quarter: 2023Q1

REPORT INFORMATION
  Report Type: Spontaneous
  Country: US (occurrence: US)
  Receive Date: 20230215
  Receipt Date: 20230215
  Transmission Date: 20230417
  Serious: No
  Sender: FDA-Public Use
  Company Number: US-PERRIGO-22US005643

PATIENT
  Age: 74 Year
  Sex: Female

DRUGS (4)
  1. OMEPRAZOLE [Suspect]
     Active Substance: OMEPRAZOLE
     Indication: Gastrooesophageal reflux disease
     Dosage: 20 MG, QD
     Route: 048
     Dates: start: 20220401, end: 202204
  2. OMEPRAZOLE [Suspect]
     Active Substance: OMEPRAZOLE
     Indication: Gastrooesophageal reflux disease
     Dosage: 20 MG, BID 2 SEPARATED DOSES
     Route: 048
     Dates: start: 202204, end: 20220412
  3. CURAMED TUTTI FRUTTI [Concomitant]
     Indication: Routine health maintenance
     Dosage: UNK
     Route: 065
  4. LINZESS [Concomitant]
     Active Substance: LINACLOTIDE
     Indication: Irritable bowel syndrome
     Dosage: UNK
     Route: 065
     Dates: start: 20220401

REACTIONS (6)
  - Dry mouth [Not Recovered/Not Resolved]
  - Pollakiuria [Unknown]
  - Breath odour [Not Recovered/Not Resolved]
  - Muscle strain [Not Recovered/Not Resolved]
  - Skin odour abnormal [Not Recovered/Not Resolved]
  - Incorrect dose administered [Recovered/Resolved]

NARRATIVE: CASE EVENT DATE: 20220401
